FAERS Safety Report 5916813-0 (Version None)
Quarter: 2008Q4

REPORT INFORMATION
  Report Type: 
  Country: None (occurrence: None)
  Receive Date: 20081013
  Receipt Date: 20081001
  Transmission Date: 20090506
  Serious: Yes (Other)
  Sender: FDA-Public Use
  Company Number: FI-PFIZER INC-2008083193

PATIENT
  Age: 35 Year
  Sex: Male

DRUGS (1)
  1. CHANTIX [Suspect]
     Route: 048
     Dates: start: 20080801, end: 20080101

REACTIONS (4)
  - DEPRESSION [None]
  - INTENTIONAL SELF-INJURY [None]
  - NIGHTMARE [None]
  - SPEECH DISORDER [None]
